FAERS Safety Report 21630135 (Version 1)
Quarter: 2022Q4

REPORT INFORMATION
  Report Type: Spontaneous
  Country: NO (occurrence: NO)
  Receive Date: 20221122
  Receipt Date: 20221122
  Transmission Date: 20230112
  Serious: Yes (Hospitalization)
  Sender: FDA-Public Use
  Company Number: NO-ANIPHARMA-2022-NO-000012

PATIENT
  Age: 75 Year
  Sex: Female

DRUGS (12)
  1. CANDESARTAN CILEXETIL [Suspect]
     Active Substance: CANDESARTAN CILEXETIL
     Indication: Hypertension
     Dosage: 16 MG QAM / 8 MG UNK
     Route: 048
  2. CLINDAMYCIN PHOSPHATE [Concomitant]
     Active Substance: CLINDAMYCIN PHOSPHATE
     Route: 065
     Dates: start: 20211126, end: 20211217
  3. DAPSONE [Concomitant]
     Active Substance: DAPSONE
     Route: 065
     Dates: start: 20211129, end: 20211227
  4. PANTOPRAZOLE SODIUM [Concomitant]
     Active Substance: PANTOPRAZOLE SODIUM
     Route: 065
     Dates: start: 20211126
  5. METOPROLOL [Suspect]
     Active Substance: METOPROLOL
     Dosage: 100 MG QAM / 50 MG DAILY
     Route: 048
  6. EPCORITAMAB [Suspect]
     Active Substance: EPCORITAMAB
     Dosage: .16 MG UNK/.8 MG UNK/48 MG WEEK/DOSE TEXT: WEEKLY ON DAY 1,8,15,22 (FULL DOSE) IN CYCLE 2-3/DOSE: BI
     Route: 030
     Dates: start: 20211203
  7. CETIRIZINE HYDROCHLORIDE [Concomitant]
     Active Substance: CETIRIZINE HYDROCHLORIDE
     Dosage: 10 MG UNK
     Route: 048
     Dates: start: 20211119, end: 20211119
  8. ACETAMINOPHEN [Concomitant]
     Active Substance: ACETAMINOPHEN
     Dosage: 1 G UNK
     Route: 048
     Dates: start: 20211217
  9. ZYRTEC [Concomitant]
     Active Substance: CETIRIZINE HYDROCHLORIDE
     Dosage: 10 MG UNK
     Route: 048
     Dates: start: 20211217
  10. ATORVASTATIN [Concomitant]
     Active Substance: ATORVASTATIN
     Route: 065
     Dates: start: 2019, end: 20211117
  11. XARELTO [Concomitant]
     Active Substance: RIVAROXABAN
     Route: 065
     Dates: start: 202101
  12. ALLOPURINOL [Concomitant]
     Active Substance: ALLOPURINOL
     Route: 065
     Dates: start: 20211119

REACTIONS (2)
  - Cytokine release syndrome [Recovered/Resolved]
  - Hypotension [Recovered/Resolved]

NARRATIVE: CASE EVENT DATE: 20211204
